FAERS Safety Report 19723835 (Version 2)
Quarter: 2022Q3

REPORT INFORMATION
  Report Type: Spontaneous
  Country: US (occurrence: US)
  Receive Date: 20210819
  Receipt Date: 20220716
  Transmission Date: 20221027
  Serious: No
  Sender: FDA-Public Use
  Company Number: US-NOVARTISTESTPH-NVSC2021US185389

PATIENT
  Sex: Female

DRUGS (1)
  1. TASIGNA [Suspect]
     Active Substance: NILOTINIB
     Indication: Paternal exposure during pregnancy
     Dosage: 200 MG, BID
     Route: 048
     Dates: start: 20170801, end: 20210801

REACTIONS (1)
  - Exposure via partner [Unknown]
